FAERS Safety Report 13981931 (Version 4)
Quarter: 2018Q2

REPORT INFORMATION
  Report Type: Report from Study
  Country: US (occurrence: US)
  Receive Date: 20170918
  Receipt Date: 20180419
  Transmission Date: 20180711
  Serious: Yes (Other)
  Sender: FDA-Public Use
  Company Number: US-ROCHE-1993309

PATIENT
  Age: 51 Year
  Sex: Female
  Weight: 86.26 kg

DRUGS (5)
  1. OCREVUS [Suspect]
     Active Substance: OCRELIZUMAB
     Indication: MULTIPLE SCLEROSIS
     Dosage: ONGOING:YES
     Route: 042
     Dates: start: 20170821
  2. BENADRYL [Concomitant]
     Active Substance: DIPHENHYDRAMINE HYDROCHLORIDE
  3. OCREVUS [Suspect]
     Active Substance: OCRELIZUMAB
     Route: 042
     Dates: start: 20170905
  4. ROCEPHIN [Suspect]
     Active Substance: CEFTRIAXONE SODIUM
     Indication: CELLULITIS
     Route: 065
     Dates: start: 201709
  5. OCREVUS [Suspect]
     Active Substance: OCRELIZUMAB
     Indication: RELAPSING-REMITTING MULTIPLE SCLEROSIS
     Dosage: ONGOING:YES
     Route: 042
     Dates: start: 20170904

REACTIONS (23)
  - Swollen tongue [Recovered/Resolved]
  - Fatigue [Recovered/Resolved]
  - Sinusitis [Recovered/Resolved]
  - Pharyngeal oedema [Recovered/Resolved]
  - Pain [Unknown]
  - Eye irritation [Unknown]
  - Herpes zoster [Unknown]
  - Ear infection [Recovered/Resolved]
  - Off label use [Unknown]
  - Pain in extremity [Unknown]
  - Nausea [Unknown]
  - Abdominal discomfort [Unknown]
  - Eye infection [Unknown]
  - Drug intolerance [Unknown]
  - Influenza like illness [Unknown]
  - Cellulitis orbital [Recovering/Resolving]
  - Cellulitis [Recovering/Resolving]
  - Immunodeficiency [Unknown]
  - Intentional product use issue [Unknown]
  - Dizziness [Recovered/Resolved]
  - Malaise [Unknown]
  - Diarrhoea [Unknown]
  - Headache [Unknown]

NARRATIVE: CASE EVENT DATE: 201709
